FAERS Safety Report 18454130 (Version 1)
Quarter: 2020Q4

REPORT INFORMATION
  Report Type: Report from Study
  Country: CA (occurrence: CA)
  Receive Date: 20201102
  Receipt Date: 20201102
  Transmission Date: 20210114
  Serious: Yes (Other)
  Sender: FDA-Public Use
  Company Number: CA-JNJFOC-20201042985

PATIENT
  Age: 9 Year
  Sex: Female
  Weight: 23.6 kg

DRUGS (1)
  1. REMICADE [Suspect]
     Active Substance: INFLIXIMAB
     Indication: COLITIS ULCERATIVE
     Dosage: ON 24-OCT-2020, THE PATIENT RECEIVED 11TH 200 MG INFLIXIMAB INFUSION
     Route: 042

REACTIONS (2)
  - Haematochezia [Recovered/Resolved]
  - General physical health deterioration [Unknown]

NARRATIVE: CASE EVENT DATE: 20201021
